FAERS Safety Report 4968533-7 (Version None)
Quarter: 2006Q2

REPORT INFORMATION
  Report Type: 
  Country: None (occurrence: None)
  Receive Date: 20060410
  Receipt Date: 20051102
  Transmission Date: 20061013
  Serious: Yes (Hospitalization)
  Sender: FDA-Public Use
  Company Number: US-MERCK-0511USA00646

PATIENT
  Age: 54 Year
  Sex: Female
  Weight: 86 kg

DRUGS (30)
  1. CIPRO [Concomitant]
     Route: 065
  2. DYNABAC [Concomitant]
     Route: 065
  3. DIFLUCAN [Concomitant]
     Route: 065
  4. PHENAZOPYRIDINE HYDROCHLORIDE [Concomitant]
     Route: 065
  5. VIOXX [Suspect]
     Indication: ARTHRITIS
     Route: 048
     Dates: start: 20020311, end: 20040903
  6. VIOXX [Suspect]
     Route: 048
     Dates: start: 20020311, end: 20040903
  7. PREMPRO [Concomitant]
     Indication: HORMONE REPLACEMENT THERAPY
     Route: 065
  8. BEXTRA [Concomitant]
     Indication: ARTHRITIS
     Route: 065
  9. AMITRIPTYLINE HYDROCHLORIDE [Concomitant]
     Indication: FIBROMYALGIA
     Route: 065
  10. VICOPROFEN [Concomitant]
     Indication: PAIN
     Route: 065
  11. ASPIRIN AND HYDROCODONE BITARTRATE [Concomitant]
     Indication: PAIN
     Route: 065
  12. AMBIEN [Concomitant]
     Indication: INSOMNIA
     Route: 065
  13. METHYLPREDNISOLONE [Concomitant]
     Indication: ARTHRITIS
     Route: 065
  14. TIZANIDINE HYDROCHLORIDE [Concomitant]
     Indication: MUSCLE SPASMS
     Route: 065
  15. CARBIDOPA [Concomitant]
     Indication: RESTLESS LEGS SYNDROME
     Route: 065
  16. PROTONIX [Concomitant]
     Indication: GASTROOESOPHAGEAL REFLUX DISEASE
     Route: 065
  17. DIDREX [Concomitant]
     Indication: DECREASED APPETITE
     Route: 065
  18. HYDROXYZINE PAMOATE [Concomitant]
     Indication: ANXIETY
     Route: 065
  19. CYCLOBENZAPRINE(WEST POINT PHARMA) [Concomitant]
     Indication: MUSCLE SPASMS
     Route: 065
  20. ASPIRIN AND PROPOXYPHENE NAPSYLATE [Concomitant]
     Indication: PAIN
     Route: 065
  21. ANEXSIA [Concomitant]
     Indication: PAIN
     Route: 065
  22. ZYRTEC [Concomitant]
     Indication: HYPERSENSITIVITY
     Route: 065
  23. IBUPROFEN [Concomitant]
     Indication: PAIN
     Route: 065
  24. FLEXERIL [Concomitant]
     Indication: PAIN
     Route: 065
  25. VOLTAREN [Concomitant]
     Indication: PAIN
     Route: 065
  26. ZITHROMAX [Concomitant]
     Route: 065
  27. PYRIDIUM [Concomitant]
     Route: 065
  28. PHENAZOPYRIDINE HYDROCHLORIDE [Concomitant]
     Route: 065
  29. ADIPEX [Concomitant]
     Route: 065
  30. AVELOX [Concomitant]
     Route: 065

REACTIONS (8)
  - BLOOD CHOLESTEROL INCREASED [None]
  - CHEST PAIN [None]
  - DEPRESSION [None]
  - GASTROOESOPHAGEAL REFLUX DISEASE [None]
  - HYPERLIPIDAEMIA [None]
  - HYPERTENSION [None]
  - HYPOTHYROIDISM [None]
  - MYOCARDIAL INFARCTION [None]
